FAERS Safety Report 7265358-7 (Version None)
Quarter: 2011Q1

REPORT INFORMATION
  Report Type: 
  Country: None (occurrence: None)
  Receive Date: 20110131
  Receipt Date: 20110119
  Transmission Date: 20110831
  Serious: Yes (Hospitalization)
  Sender: FDA-Public Use
  Company Number: US-BAYER-2011-006211

PATIENT
  Age: 10 Year
  Sex: Male

DRUGS (3)
  1. SULFADIAZINE [Suspect]
     Dosage: UNK
  2. ASPIRIN [Suspect]
     Indication: RHEUMATIC FEVER
     Dosage: UNK
  3. PENICILLIN VK [Concomitant]
     Indication: RHEUMATIC FEVER
     Dosage: UNK

REACTIONS (1)
  - STEVENS-JOHNSON SYNDROME [None]
